FAERS Safety Report 10103777 (Version 1)
Quarter: 2014Q2

REPORT INFORMATION
  Report Type: Spontaneous
  Country: JP (occurrence: JP)
  Receive Date: 20140424
  Receipt Date: 20140424
  Transmission Date: 20141212
  Serious: Yes (Other)
  Sender: FDA-Public Use
  Company Number: JP-BAXTER-2014BAX019865

PATIENT
  Age: 44 Year
  Sex: Female
  Weight: 55 kg

DRUGS (21)
  1. SUPRANE [Suspect]
     Indication: MAINTENANCE OF ANAESTHESIA
     Dosage: 1 TO 1.5 MINIMUM ALVEOLAR CONCENTRATION
     Route: 055
  2. SUPRANE [Suspect]
     Route: 055
  3. PROPOFOL [Suspect]
     Indication: INDUCTION OF ANAESTHESIA
     Route: 042
  4. PENTAZOCINE [Suspect]
     Indication: INDUCTION OF ANAESTHESIA
     Route: 065
  5. PENTAZOCINE [Suspect]
     Indication: MAINTENANCE OF ANAESTHESIA
     Route: 065
  6. SEVOFLURANE [Suspect]
     Indication: MAINTENANCE OF ANAESTHESIA
     Route: 055
  7. EPIRUBICIN HYDROCHLORIDE [Concomitant]
     Indication: PRODUCT USED FOR UNKNOWN INDICATION
     Route: 065
  8. CYCLOPHOSPHAMIDE HYDRATE [Concomitant]
     Indication: PRODUCT USED FOR UNKNOWN INDICATION
     Route: 065
  9. FLUOROURACIL [Concomitant]
     Indication: PRODUCT USED FOR UNKNOWN INDICATION
     Route: 065
  10. DOCETAXEL [Concomitant]
     Indication: PRODUCT USED FOR UNKNOWN INDICATION
     Route: 065
  11. TRASTUZUMAB (GENETICAL RECOMBINATION) [Concomitant]
     Indication: PRODUCT USED FOR UNKNOWN INDICATION
     Route: 065
  12. IRSOGLADINE MALEATE [Concomitant]
     Indication: PRODUCT USED FOR UNKNOWN INDICATION
     Route: 065
  13. LOXOPROFEN [Concomitant]
     Indication: PRODUCT USED FOR UNKNOWN INDICATION
     Route: 065
  14. REBAMIPIDE [Concomitant]
     Indication: PRODUCT USED FOR UNKNOWN INDICATION
     Route: 065
  15. GOSHAJINKIGAN [Concomitant]
     Indication: PRODUCT USED FOR UNKNOWN INDICATION
     Route: 065
  16. ETODOLAC [Concomitant]
     Indication: PRODUCT USED FOR UNKNOWN INDICATION
     Route: 065
  17. FUROSEMIDE [Concomitant]
     Indication: PRODUCT USED FOR UNKNOWN INDICATION
     Route: 065
  18. SPIRONOLACTONE [Concomitant]
     Indication: PRODUCT USED FOR UNKNOWN INDICATION
     Route: 065
  19. MAGNESIUM SALTS PREPARATIONS [Concomitant]
     Indication: RHYTHM IDIOVENTRICULAR
     Route: 042
  20. CALCIUM COMPOUNDS AND PREPARATIONS [Concomitant]
     Indication: RHYTHM IDIOVENTRICULAR
     Route: 042
  21. LIDOCAINE [Concomitant]
     Indication: RHYTHM IDIOVENTRICULAR
     Route: 041

REACTIONS (1)
  - Accelerated idioventricular rhythm [Recovered/Resolved]
